FAERS Safety Report 15047621 (Version 1)
Quarter: 2018Q2

REPORT INFORMATION
  Report Type: Spontaneous
  Country: CZ (occurrence: CZ)
  Receive Date: 20180621
  Receipt Date: 20180621
  Transmission Date: 20180711
  Serious: Yes (Life-Threatening)
  Sender: FDA-Public Use
  Company Number: CZ-009507513-1806CZE007526

PATIENT
  Age: 4 Year
  Sex: Male
  Weight: 21 kg

DRUGS (3)
  1. ECOBEC [Concomitant]
     Active Substance: BECLOMETHASONE DIPROPIONATE
     Route: 055
     Dates: start: 20171115, end: 20180215
  2. SINGULAIR [Suspect]
     Active Substance: MONTELUKAST SODIUM
     Dosage: HE HAS TAKEN THE MEDICATION SINCE 11/2016 TILL 4/2017 AND THEN SINCE 8/2017 UNTIL 1/2018
     Route: 048
     Dates: start: 20161115, end: 20180123
  3. SINGULAIR [Suspect]
     Active Substance: MONTELUKAST SODIUM
     Dosage: UNK
     Dates: start: 201611, end: 201704

REACTIONS (6)
  - Aggression [Recovering/Resolving]
  - Onychophagia [Recovering/Resolving]
  - Depression [Recovering/Resolving]
  - Abnormal behaviour [Recovering/Resolving]
  - Anxiety [Recovering/Resolving]
  - Agitation [Recovering/Resolving]
